FAERS Safety Report 16244153 (Version 3)
Quarter: 2019Q3

REPORT INFORMATION
  Report Type: Spontaneous
  Country: JP (occurrence: JP)
  Receive Date: 20190426
  Receipt Date: 20190726
  Transmission Date: 20191004
  Serious: Yes (Death, Hospitalization)
  Sender: FDA-Public Use
  Company Number: JP-ASTRAZENECA-2019SE49078

PATIENT
  Age: 31073 Day
  Sex: Male
  Weight: 62 kg

DRUGS (9)
  1. BAKTAR [Concomitant]
     Active Substance: SULFAMETHOXAZOLE\TRIMETHOPRIM
     Indication: PNEUMOCYSTIS JIROVECII PNEUMONIA
     Route: 048
  2. FOLIAMIN [Concomitant]
     Active Substance: FOLIC ACID
     Indication: RHEUMATOID ARTHRITIS
     Dosage: 5.0MG UNKNOWN
     Route: 048
  3. NEXIUM [Concomitant]
     Active Substance: ESOMEPRAZOLE MAGNESIUM
     Indication: GASTRIC ULCER
     Route: 048
  4. PREDONINE [Concomitant]
     Active Substance: PREDNISOLONE
     Indication: RHEUMATOID ARTHRITIS
     Route: 048
     Dates: end: 201903
  5. CELECOX [Concomitant]
     Active Substance: CELECOXIB
     Indication: RHEUMATOID ARTHRITIS
  6. TAGRISSO [Suspect]
     Active Substance: OSIMERTINIB
     Indication: NON-SMALL CELL LUNG CANCER
     Route: 048
     Dates: start: 20190312, end: 20190325
  7. ONON [Concomitant]
     Active Substance: PRANLUKAST
     Indication: ASTHMA
     Route: 048
  8. CLEANAL [Concomitant]
     Active Substance: FUDOSTEINE
     Indication: ASTHMA
     Route: 048
  9. RHEUMATREX [Concomitant]
     Active Substance: METHOTREXATE SODIUM
     Indication: RHEUMATOID ARTHRITIS
     Dosage: 2.0MG UNKNOWN
     Route: 048
     Dates: end: 20190313

REACTIONS (2)
  - Thrombocytopenia [Unknown]
  - Lung disorder [Fatal]

NARRATIVE: CASE EVENT DATE: 20190325
